FAERS Safety Report 12705686 (Version 2)
Quarter: 2019Q3

REPORT INFORMATION
  Report Type: Spontaneous
  Country: FR (occurrence: FR)
  Receive Date: 20160901
  Receipt Date: 20190816
  Transmission Date: 20191004
  Serious: Yes (Hospitalization, Other)
  Sender: FDA-Public Use
  Company Number: FR-ASTRAZENECA-2016SE91369

PATIENT
  Age: 85 Year
  Sex: Female
  Weight: 49.9 kg

DRUGS (12)
  1. LASILIX SPECIAL [Concomitant]
     Active Substance: FUROSEMIDE
  2. SERESTA [Concomitant]
     Active Substance: OXAZEPAM
  3. CIPROFLOXACIN. [Concomitant]
     Active Substance: CIPROFLOXACIN
  4. KARDEGIC [Concomitant]
     Active Substance: ASPIRIN DL-LYSINE
  5. ATACAND [Suspect]
     Active Substance: CANDESARTAN CILEXETIL
     Indication: HYPERTENSION
     Dosage: 8.0MG UNKNOWN
     Route: 048
     Dates: start: 20160716, end: 20160810
  6. TELMISARTAN. [Suspect]
     Active Substance: TELMISARTAN
     Indication: HYPERTENSION
     Route: 048
     Dates: start: 20160420, end: 20160715
  7. CALCIDOSE VITAMIN D [Concomitant]
     Active Substance: CALCIUM CARBONATE\CHOLECALCIFEROL
  8. SINEMET LP [Concomitant]
     Active Substance: CARBIDOPA\LEVODOPA
  9. LOPERAMIDE HYDROCHLORIDE. [Concomitant]
     Active Substance: LOPERAMIDE HYDROCHLORIDE
  10. TIORFAN [Concomitant]
     Active Substance: RACECADOTRIL
  11. DIFFU K [Concomitant]
     Active Substance: POTASSIUM CHLORIDE
  12. ISOPHANE INSULIN [Concomitant]
     Active Substance: INSULIN NOS

REACTIONS (13)
  - Diverticulum intestinal [Unknown]
  - Malnutrition [Unknown]
  - Bacterial colitis [Unknown]
  - Hypotension [Unknown]
  - Hypokalaemia [Recovered/Resolved]
  - Dehydration [Unknown]
  - Weight decreased [Not Recovered/Not Resolved]
  - Diarrhoea [Recovered/Resolved]
  - Chronic gastritis [Unknown]
  - Renal failure [Recovered/Resolved]
  - Decreased appetite [Unknown]
  - Candida infection [Unknown]
  - Acute kidney injury [Recovered/Resolved]

NARRATIVE: CASE EVENT DATE: 20160614
